FAERS Safety Report 22102046 (Version 1)
Quarter: 2023Q1

REPORT INFORMATION
  Report Type: Report from Study
  Country: US (occurrence: US)
  Receive Date: 20230316
  Receipt Date: 20230316
  Transmission Date: 20230417
  Serious: Yes (Other)
  Sender: FDA-Public Use
  Company Number: US-002147023-NVSC2023US055294

PATIENT
  Sex: Female

DRUGS (1)
  1. MAYZENT [Suspect]
     Active Substance: SIPONIMOD
     Indication: Multiple sclerosis
     Dosage: 2 MG, QD
     Route: 048

REACTIONS (6)
  - Lymphoma [Unknown]
  - Skin discolouration [Unknown]
  - Lymphopenia [Unknown]
  - White blood cell count decreased [Unknown]
  - Pigmentation disorder [Unknown]
  - Product dose omission issue [Unknown]
